FAERS Safety Report 7668647-7 (Version None)
Quarter: 2011Q3

REPORT INFORMATION
  Report Type: 
  Country: None (occurrence: None)
  Receive Date: 20110808
  Receipt Date: 20110725
  Transmission Date: 20111222
  Serious: Yes (Other)
  Sender: FDA-Public Use
  Company Number: US-BAYER-201018778NA

PATIENT
  Age: 35 Year
  Sex: Female
  Weight: 77.098 kg

DRUGS (15)
  1. WELLBUTRIN [Concomitant]
  2. PERCOCET [Concomitant]
     Indication: PAIN
     Dosage: UNK UNK, PRN
     Route: 048
     Dates: start: 20090705
  3. YAZ [Suspect]
     Indication: CONTRACEPTION
     Dosage: UNK UNK, UNK
     Route: 048
     Dates: start: 20080101, end: 20090101
  4. ADVIL LIQUI-GELS [Concomitant]
  5. ATIVAN [Concomitant]
     Dosage: UNK UNK, PRN
     Route: 048
  6. ZOLPIDEM TARTRATE [Concomitant]
     Dosage: 10 MG, UNK
     Route: 048
  7. LITHIUM CARBONATE [Concomitant]
  8. LAMICTAL [Concomitant]
  9. CLONAZEPAM [Concomitant]
     Dosage: 1 MG, UNK
  10. ZOFRAN [Concomitant]
     Indication: NAUSEA
     Dosage: 8 MG, BID
     Route: 048
     Dates: start: 20090705
  11. MOTRIN [Concomitant]
  12. AZITHROMYCIN [Concomitant]
     Dosage: 250 MG, UNK
  13. TRAZODONE HCL [Concomitant]
     Dosage: 50 MG, UNK
  14. CYMBALTA [Concomitant]
     Dosage: 90 MG, UNK
     Route: 048
  15. BISMUTH SUBSALICYLATE [Concomitant]

REACTIONS (2)
  - PAIN [None]
  - CHOLELITHIASIS [None]
